FAERS Safety Report 21390656 (Version 1)
Quarter: 2022Q3

REPORT INFORMATION
  Report Type: Spontaneous
  Country: US (occurrence: US)
  Receive Date: 20220929
  Receipt Date: 20220929
  Transmission Date: 20221027
  Serious: No
  Sender: FDA-Public Use
  Company Number: US-LUPIN PHARMACEUTICALS INC.-2022-11542

PATIENT
  Age: 42 Year
  Sex: Female

DRUGS (4)
  1. NYSTATIN\TRIAMCINOLONE ACETONIDE [Suspect]
     Active Substance: NYSTATIN\TRIAMCINOLONE ACETONIDE
     Indication: Vulvovaginal candidiasis
     Dosage: UNK
     Route: 061
  2. TERCONAZOLE [Suspect]
     Active Substance: TERCONAZOLE
     Indication: Vulvovaginal candidiasis
     Dosage: UNK
     Route: 065
  3. BORIC ACID [Suspect]
     Active Substance: BORIC ACID
     Indication: Vulvovaginal candidiasis
     Dosage: UNK
     Route: 065
  4. FLUCONAZOLE [Suspect]
     Active Substance: FLUCONAZOLE
     Indication: Vulvovaginal candidiasis
     Dosage: UNK (MULTIPLE COURSES)
     Route: 048

REACTIONS (1)
  - Drug ineffective [Unknown]
